FAERS Safety Report 8974557 (Version 1)
Quarter: 2012Q4

REPORT INFORMATION
  Report Type: 
  Country: US (occurrence: US)
  Receive Date: 20121220
  Receipt Date: 20121220
  Transmission Date: 20130627
  Serious: Yes (Other)
  Sender: FDA-Public Use
  Company Number: US-ALLERGAN-1217409US

PATIENT
  Age: 52 Year
  Sex: Female

DRUGS (2)
  1. LATISSE 0.03% [Suspect]
     Indication: GROWTH OF EYELASHES
     Dosage: 2 Gtt, qhs
     Route: 061
  2. ALLERGY MEDICATION [Concomitant]
     Indication: SEASONAL ALLERGY

REACTIONS (7)
  - Retinal detachment [Not Recovered/Not Resolved]
  - Scleroedema [Unknown]
  - Swelling face [Unknown]
  - Swelling face [Unknown]
  - Sensory disturbance [Unknown]
  - Swelling face [Unknown]
  - Wrong technique in drug usage process [Unknown]
